FAERS Safety Report 8366929-7 (Version None)
Quarter: 2012Q2

REPORT INFORMATION
  Report Type: 
  Country: None (occurrence: None)
  Receive Date: 20120517
  Receipt Date: 20120511
  Transmission Date: 20120825
  Serious: Yes (Hospitalization)
  Sender: FDA-Public Use
  Company Number: US-JNJFOC-20120511737

PATIENT
  Age: 48 Year
  Sex: Female
  Weight: 62.6 kg

DRUGS (2)
  1. EXTRA STRENGTH TYLENOL [Suspect]
     Indication: HEADACHE
     Dosage: HAS USED OFF AND ON FOR YEARS (2-3 CAPLETS EVERY 4-6 HOURS)
     Route: 048
     Dates: end: 20120504
  2. EXTRA STRENGTH TYLENOL [Suspect]
     Indication: MIGRAINE
     Dosage: HAS USED OFF AND ON FOR YEARS (2-3 CAPLETS EVERY 4-6 HOURS)
     Route: 048
     Dates: end: 20120504

REACTIONS (2)
  - HEPATIC FAILURE [None]
  - INCORRECT DOSE ADMINISTERED [None]
